FAERS Safety Report 4322987-8 (Version None)
Quarter: 2004Q1

REPORT INFORMATION
  Report Type: 
  Country: None (occurrence: None)
  Receive Date: 20040322
  Receipt Date: 20040310
  Transmission Date: 20041129
  Serious: Yes (Death, Hospitalization)
  Sender: FDA-Public Use
  Company Number: US068878

PATIENT
  Sex: Male

DRUGS (2)
  1. NEUPOGEN [Suspect]
     Indication: CHEMOTHERAPY
     Dates: start: 20040226, end: 20040227
  2. CYCLOPHOSPHAMIDE [Concomitant]

REACTIONS (4)
  - BONE PAIN [None]
  - LUNG DISORDER [None]
  - OXYGEN SATURATION DECREASED [None]
  - PRURITUS [None]
